FAERS Safety Report 6540116-7 (Version None)
Quarter: 2010Q1

REPORT INFORMATION
  Report Type: 
  Country: None (occurrence: None)
  Receive Date: 20100115
  Receipt Date: 20100105
  Transmission Date: 20100710
  Serious: Yes (Other)
  Sender: FDA-Public Use
  Company Number: US-PFIZER INC-2010002708

PATIENT
  Age: 62 Year
  Sex: Female
  Weight: 72 kg

DRUGS (13)
  1. ATGAM [Suspect]
     Indication: APLASTIC ANAEMIA
     Route: 042
     Dates: start: 20091105, end: 20091105
  2. TYLENOL (CAPLET) [Concomitant]
     Dosage: UNK
     Dates: start: 20091104
  3. ALLOPURINOL [Concomitant]
     Dosage: UNK
  4. ZOVIRAX [Concomitant]
     Dosage: 800 MG, 2X/DAY
  5. CYCLOSPORINE [Concomitant]
     Dosage: 75 MG, 2X/DAY
  6. POSACONAZOLE [Concomitant]
     Dosage: 200 MG, 3X/DAY
  7. NEUPOGEN [Concomitant]
     Dosage: UNK
     Dates: start: 20091104
  8. LEVAQUIN [Concomitant]
     Dosage: 500 MG, 2X/DAY
  9. DEMEROL [Concomitant]
     Dosage: UNK
  10. AMLODIPINE BESILATE [Concomitant]
     Dosage: 5 MG, 1X/DAY
  11. ZOCOR [Concomitant]
     Dosage: 40 MG, UNK
  12. VENTOLIN [Concomitant]
     Dosage: UNK
  13. DIPHENHYDRAMINE [Concomitant]
     Dosage: UNK
     Dates: start: 20091104

REACTIONS (5)
  - CHEST PAIN [None]
  - CHILLS [None]
  - ELECTROCARDIOGRAM ST SEGMENT DEPRESSION [None]
  - PYREXIA [None]
  - TROPONIN INCREASED [None]
